FAERS Safety Report 5927253-2 (Version None)
Quarter: 2008Q4

REPORT INFORMATION
  Report Type: 
  Country: None (occurrence: None)
  Receive Date: 20081022
  Receipt Date: 20081014
  Transmission Date: 20090506
  Serious: Yes (Other)
  Sender: FDA-Public Use
  Company Number: GB-PFIZER INC-2008087023

PATIENT
  Sex: Female

DRUGS (2)
  1. LONITEN [Suspect]
     Route: 048
  2. DRUG, UNSPECIFIED [Concomitant]

REACTIONS (2)
  - RENAL IMPAIRMENT [None]
  - URINE OUTPUT DECREASED [None]
